FAERS Safety Report 21248534 (Version 1)
Quarter: 2022Q3

REPORT INFORMATION
  Report Type: Spontaneous
  Country: US (occurrence: US)
  Receive Date: 20220824
  Receipt Date: 20220824
  Transmission Date: 20221027
  Serious: No
  Sender: FDA-Public Use
  Company Number: US-Blueprint Medicines Corporation-370

PATIENT
  Age: 58 Year
  Sex: Male

DRUGS (2)
  1. AYVAKIT [Suspect]
     Active Substance: AVAPRITINIB
     Indication: Systemic mastocytosis
     Dosage: 50MG EVERY OTHER DAY, ALTERNATING 25MG EVERY OTHER DAY
     Route: 048
     Dates: start: 20211130
  2. AYVAKIT [Suspect]
     Active Substance: AVAPRITINIB
     Dosage: 50MG EVERY OTHER DAY, ALTERNATING 25MG EVERY OTHER DAY
     Route: 048
     Dates: start: 20211130

REACTIONS (2)
  - Platelet count decreased [Unknown]
  - Off label use [Unknown]

NARRATIVE: CASE EVENT DATE: 20211130
